FAERS Safety Report 9913271 (Version 1)
Quarter: 2014Q1

REPORT INFORMATION
  Report Type: Other
  Country: US (occurrence: US)
  Receive Date: 20140220
  Receipt Date: 20140220
  Transmission Date: 20141002
  Serious: Yes (Hospitalization)
  Sender: FDA-Public Use
  Company Number: US-BRISTOL-MYERS SQUIBB COMPANY-20200192

PATIENT
  Age: 41 Year
  Sex: Male

DRUGS (5)
  1. METFORMIN HCL [Suspect]
  2. LISINOPRIL [Suspect]
  3. GLIPIZIDE [Suspect]
  4. BUPROPION [Suspect]
  5. SIMVASTATIN [Suspect]

REACTIONS (1)
  - Renal tubular acidosis [Unknown]
